FAERS Safety Report 18642609 (Version 4)
Quarter: 2021Q2

REPORT INFORMATION
  Report Type: Report from Study
  Country: US (occurrence: US)
  Receive Date: 20201221
  Receipt Date: 20210414
  Transmission Date: 20210717
  Serious: Yes (Hospitalization)
  Sender: FDA-Public Use
  Company Number: US-GLAXOSMITHKLINE-US2020GSK212741

PATIENT
  Age: 71 Year
  Sex: Female
  Weight: 49.5 kg

DRUGS (27)
  1. BELANTAMAB MAFODOTIN. [Suspect]
     Active Substance: BELANTAMAB MAFODOTIN
     Dosage: 115.8 MG, CYC
     Route: 042
     Dates: start: 20201013
  2. DRISDOL [Concomitant]
     Active Substance: ERGOCALCIFEROL
  3. LINZESS [Concomitant]
     Active Substance: LINACLOTIDE
     Dosage: 3 MG
     Route: 048
  4. REFRESH [Concomitant]
     Active Substance: UNSPECIFIED INGREDIENT
  5. AMOXICILLIN + CLAVULANATE ORAL TABLET [Concomitant]
     Dosage: 1 DF (500?125 MG), BID
     Route: 048
  6. LIDOCAIN VISCOUS [Concomitant]
     Dosage: 5 ML, TID
     Route: 048
  7. PANTOPRAZOLE [Concomitant]
     Active Substance: PANTOPRAZOLE
     Dosage: 40 MG
     Route: 048
  8. LINACLOTIDE [Concomitant]
     Active Substance: LINACLOTIDE
     Indication: IRRITABLE BOWEL SYNDROME
     Dosage: 145 UG, QD
     Route: 048
  9. ELTROMBOPAG [Concomitant]
     Active Substance: ELTROMBOPAG
     Indication: ANAEMIA
     Dosage: 50 MG
     Route: 048
  10. FOLIC ACID TABLET [Concomitant]
     Active Substance: FOLIC ACID
     Dosage: 1 MG
     Route: 048
  11. BELANTAMAB MAFODOTIN. [Suspect]
     Active Substance: BELANTAMAB MAFODOTIN
     Indication: PLASMA CELL MYELOMA
     Dosage: 115.8 MG, CYC
     Route: 042
     Dates: start: 20200917
  12. NORVASC [Concomitant]
     Active Substance: AMLODIPINE BESYLATE
  13. PROMACTA [Concomitant]
     Active Substance: ELTROMBOPAG OLAMINE
  14. FOLVITE [Concomitant]
     Active Substance: FOLIC ACID
  15. SENOKOT [Concomitant]
     Active Substance: SENNOSIDES
  16. REFRESH OPTIVE ADVANCED EYE DROPS (CARBOXYMETHYLCELLULOSE SODIUM + GLY [Concomitant]
     Indication: EYE IRRITATION
     Dosage: 1 DROP BOTH EYES
     Route: 047
  17. VALTREX [Concomitant]
     Active Substance: VALACYCLOVIR HYDROCHLORIDE
  18. COLACE [Concomitant]
     Active Substance: DOCUSATE SODIUM
  19. DIPHENHYDRAMINE + LIDOCAINE [Concomitant]
     Indication: LOCAL ANAESTHESIA
     Dosage: 15 ML, EVERY 6 HOUR
  20. ERGOCALCIFEROL CAPSULE (VITAMIN D2) [Concomitant]
     Indication: HYPOVITAMINOSIS
     Dosage: 1.25 MG
     Route: 048
  21. DICLOFENAC SODIUM. [Concomitant]
     Active Substance: DICLOFENAC SODIUM
     Dosage: UNK, BID
     Route: 062
  22. AMLODIPINE [Concomitant]
     Active Substance: AMLODIPINE BESYLATE
     Indication: BLOOD PRESSURE MEASUREMENT
     Dosage: 5 MG, QD
     Route: 048
  23. XYLOCAINE [Concomitant]
     Active Substance: LIDOCAINE HYDROCHLORIDE
  24. CALCIUM GLUCONATE. [Concomitant]
     Active Substance: CALCIUM GLUCONATE
     Indication: CALCIUM DEFICIENCY
     Dosage: 500 MG, BID
  25. BIOTENE NOS [Concomitant]
     Active Substance: CETYLPYRIDINIUM CHLORIDE OR SODIUM FLUORIDE OR SODIUM MONOFLUOROPHOSPHATE OR GLUCOSE OXIDASE\LACTOFERRIN\LACTOPEROXIDASE BOVINE\LYSOZYME
     Indication: DENTAL DISORDER PROPHYLAXIS
     Dosage: 15 ML, TID
     Route: 002
  26. STERILE WATER [Concomitant]
     Active Substance: WATER
     Indication: ORAL PAIN
     Dosage: 5 ML, EVERY 6 HR
  27. CHOLECALCIFEROL CAPSULE [Concomitant]
     Active Substance: CHOLECALCIFEROL
     Dosage: 1.25 MG

REACTIONS (3)
  - Pain in jaw [Recovered/Resolved]
  - Oral disorder [Recovered/Resolved]
  - Oral mucosa haematoma [Recovering/Resolving]

NARRATIVE: CASE EVENT DATE: 20201018
